FAERS Safety Report 8407024-8 (Version None)
Quarter: 2012Q2

REPORT INFORMATION
  Report Type: 
  Country: None (occurrence: None)
  Receive Date: 20120530
  Receipt Date: 20050725
  Transmission Date: 20120825
  Serious: Yes (Disabling, Other)
  Sender: FDA-Public Use
  Company Number: 02100-JPN-05-0381

PATIENT
  Age: 69 Year
  Sex: Female

DRUGS (2)
  1. PLETAL [Suspect]
     Indication: LACUNAR INFARCTION
     Dosage: 100 MG, BID, ORAL
     Route: 048
     Dates: start: 20040701, end: 20041018
  2. LOW MOLECULAR DEXTRAN L (SODIUM LACTATE, POTASSIUM CHLORIDE, SODIUM CH [Concomitant]

REACTIONS (3)
  - SUBARACHNOID HAEMORRHAGE [None]
  - INTRACRANIAL ANEURYSM [None]
  - HEMIPLEGIA [None]
